FAERS Safety Report 20016451 (Version 1)
Quarter: 2021Q4

REPORT INFORMATION
  Report Type: Spontaneous
  Country: US (occurrence: None)
  Receive Date: 20211104
  Receipt Date: 20211104
  Transmission Date: 20220303
  Serious: No
  Sender: FDA-Public Use
  Company Number: None

PATIENT
  Sex: Female

DRUGS (1)
  1. LUMAKRAS [Suspect]
     Active Substance: SOTORASIB
     Indication: Osteoarthritis
     Dosage: FREQUENCY : DAILY;?
     Route: 048
     Dates: start: 202110

REACTIONS (2)
  - Rash [None]
  - Unevaluable event [None]
